FAERS Safety Report 19899471 (Version 2)
Quarter: 2021Q4

REPORT INFORMATION
  Report Type: Spontaneous
  Country: JP (occurrence: JP)
  Receive Date: 20210930
  Receipt Date: 20211021
  Transmission Date: 20220303
  Serious: Yes (Hospitalization, Other)
  Sender: FDA-Public Use
  Company Number: NVSJ2021JP013904

PATIENT
  Age: 14 Year
  Sex: Female

DRUGS (4)
  1. ELTROMBOPAG OLAMINE [Suspect]
     Active Substance: ELTROMBOPAG OLAMINE
     Indication: Immune thrombocytopenia
     Dosage: 50 MG
     Route: 048
     Dates: start: 20200728
  2. PREDNISOLONE [Concomitant]
     Active Substance: PREDNISOLONE
     Indication: Product used for unknown indication
     Dosage: UNK
     Route: 065
  3. FAMOTIDINE [Concomitant]
     Active Substance: FAMOTIDINE
     Indication: Product used for unknown indication
     Dosage: UNK
     Route: 065
  4. SODIUM FERROUS CITRATE [Concomitant]
     Active Substance: SODIUM FERROUS CITRATE
     Indication: Product used for unknown indication
     Dosage: UNK
     Route: 065

REACTIONS (7)
  - Platelet count decreased [Recovering/Resolving]
  - Therapeutic product effect incomplete [Recovering/Resolving]
  - Epistaxis [Unknown]
  - Gingival bleeding [Unknown]
  - Menstrual disorder [Unknown]
  - Petechiae [Unknown]
  - Product use issue [Unknown]

NARRATIVE: CASE EVENT DATE: 20210903
